FAERS Safety Report 4336559-2 (Version None)
Quarter: 2004Q2

REPORT INFORMATION
  Report Type: 
  Country: None (occurrence: None)
  Receive Date: 20040409
  Receipt Date: 20040409
  Transmission Date: 20050107
  Serious: Yes (Life-Threatening, Hospitalization)
  Sender: FDA-Public Use
  Company Number: None

PATIENT
  Sex: Female

DRUGS (10)
  1. LOVENOX [Suspect]
     Indication: CEREBROVASCULAR ACCIDENT
     Dosage: 60 MG BID SUBCUTANEOUS
     Route: 058
     Dates: start: 20040204, end: 20040322
  2. COUMADIN [Suspect]
     Indication: CEREBROVASCULAR ACCIDENT
     Dosage: 7 MG HS ORAL
     Route: 048
     Dates: start: 20000909, end: 20040322
  3. PREVACID [Concomitant]
  4. SLO-BID [Concomitant]
  5. ALTACE [Concomitant]
  6. ZOLOFT [Concomitant]
  7. FLEXERIL [Concomitant]
  8. CARDIZEM [Concomitant]
  9. ZOCOR [Concomitant]
  10. IRON [Concomitant]

REACTIONS (5)
  - ABDOMINAL PAIN [None]
  - HYPOTENSION [None]
  - MUSCLE HAEMORRHAGE [None]
  - RENAL INFARCT [None]
  - RESPIRATORY DISTRESS [None]
